FAERS Safety Report 8608654-0 (Version None)
Quarter: 2012Q3

REPORT INFORMATION
  Report Type: 
  Country: None (occurrence: None)
  Receive Date: 20120821
  Receipt Date: 20120814
  Transmission Date: 20120928
  Serious: Yes (Life-Threatening)
  Sender: FDA-Public Use
  Company Number: FR-CELGENEUS-056-50794-12081526

PATIENT
  Sex: Male

DRUGS (1)
  1. VIDAZA [Suspect]
     Dosage: 150 MILLIGRAM/SQ. METER
     Route: 050
     Dates: start: 20090323

REACTIONS (1)
  - HEPATIC NEOPLASM MALIGNANT [None]
